FAERS Safety Report 13803423 (Version 1)
Quarter: 2017Q3

REPORT INFORMATION
  Report Type: Spontaneous
  Country: US (occurrence: US)
  Receive Date: 20170728
  Receipt Date: 20170728
  Transmission Date: 20171127
  Serious: No
  Sender: FDA-Public Use
  Company Number: US-TAKEDA-2017TUS015572

PATIENT
  Age: 30 Year
  Sex: Female

DRUGS (1)
  1. TRINTELLIX [Suspect]
     Active Substance: VORTIOXETINE HYDROBROMIDE
     Indication: MAJOR DEPRESSION
     Dosage: 2.5 MG, QD
     Route: 048
     Dates: start: 2017, end: 2017

REACTIONS (2)
  - Nervousness [Unknown]
  - Underdose [Unknown]

NARRATIVE: CASE EVENT DATE: 2017
